FAERS Safety Report 5409108-5 (Version None)
Quarter: 2007Q3

REPORT INFORMATION
  Report Type: 
  Country: None (occurrence: None)
  Receive Date: 20070808
  Receipt Date: 20070806
  Transmission Date: 20080115
  Serious: Yes (Other)
  Sender: FDA-Public Use
  Company Number: US-BRISTOL-MYERS SQUIBB COMPANY-13869102

PATIENT
  Age: 12 Year
  Sex: Male

DRUGS (2)
  1. ETOPOSIDE [Suspect]
     Indication: LEIOMYOSARCOMA
  2. IFOSFAMIDE [Suspect]
     Indication: LEIOMYOSARCOMA

REACTIONS (1)
  - RENAL CELL CARCINOMA STAGE UNSPECIFIED [None]
